FAERS Safety Report 7297880-1 (Version None)
Quarter: 2011Q1

REPORT INFORMATION
  Report Type: 
  Country: None (occurrence: None)
  Receive Date: 20110217
  Receipt Date: 20110214
  Transmission Date: 20110831
  Serious: No
  Sender: FDA-Public Use
  Company Number: US-JNJFOC-20110204712

PATIENT
  Sex: Female
  Weight: 83.92 kg

DRUGS (3)
  1. AMBIEN [Concomitant]
     Indication: SLEEP DISORDER
     Route: 048
  2. FENTANYL-100 [Suspect]
     Indication: PAIN
     Route: 062
  3. FENTANYL-100 [Suspect]
     Route: 062

REACTIONS (4)
  - RESTLESS LEGS SYNDROME [None]
  - DRUG INEFFECTIVE [None]
  - PRODUCT QUALITY ISSUE [None]
  - WRONG TECHNIQUE IN DRUG USAGE PROCESS [None]
